FAERS Safety Report 4734515-3 (Version None)
Quarter: 2005Q3

REPORT INFORMATION
  Report Type: 
  Country: None (occurrence: None)
  Receive Date: 20050721
  Receipt Date: 20050419
  Transmission Date: 20060218
  Serious: No
  Sender: FDA-Public Use
  Company Number: 2005SP000249

PATIENT
  Age: 55 Year
  Sex: Male
  Weight: 90.7194 kg

DRUGS (5)
  1. LUNESTA [Suspect]
     Indication: INSOMNIA
     Dosage: 1; MG; HS; ORAL; SEE IMAGE
     Route: 048
     Dates: start: 20050401, end: 20050401
  2. LUNESTA [Suspect]
     Indication: INSOMNIA
     Dosage: 1; MG; HS; ORAL; SEE IMAGE
     Route: 048
     Dates: start: 20050401, end: 20050401
  3. LUNESTA [Suspect]
     Indication: INSOMNIA
     Dosage: 1; MG; HS; ORAL; SEE IMAGE
     Route: 048
     Dates: start: 20050408, end: 20050401
  4. LUNESTA [Suspect]
     Indication: INSOMNIA
     Dosage: 1; MG; HS; ORAL; SEE IMAGE
     Route: 048
     Dates: start: 20050429
  5. AMBIEN [Concomitant]

REACTIONS (2)
  - MIDDLE INSOMNIA [None]
  - SLEEP WALKING [None]
